FAERS Safety Report 15606902 (Version 1)
Quarter: 2018Q4

REPORT INFORMATION
  Report Type: Report from Study
  Country: US (occurrence: US)
  Receive Date: 20181112
  Receipt Date: 20181112
  Transmission Date: 20190205
  Serious: Yes (Other)
  Sender: FDA-Public Use
  Company Number: US-PFIZER INC-2018449228

PATIENT
  Age: 70 Year
  Sex: Male

DRUGS (7)
  1. NORMAL SALINE [Concomitant]
     Active Substance: SODIUM CHLORIDE
     Dosage: UNK (5 TO 10 MG OF PRESERVATIVE-FREE MORPHINE SULFATE IN NORMAL SALINE WAS INJECTED (X DOSE = 6.75 )
     Route: 008
  2. NORMAL SALINE [Concomitant]
     Active Substance: SODIUM CHLORIDE
     Dosage: UNK (NORMAL SALINE WAS ADMINISTERED TO EACH PATIENT (X = 1.65 MG)
     Route: 037
  3. MORPHINE SULFATE. [Suspect]
     Active Substance: MORPHINE SULFATE
     Indication: CANCER PAIN
     Dosage: UNK, SINGLE (BOLUS 1.0 TO 2.5 MG)
     Route: 037
  4. MORPHINE SULFATE. [Suspect]
     Active Substance: MORPHINE SULFATE
     Dosage: 19.2 MG, DAILY
     Route: 037
  5. MORPHINE SULFATE. [Suspect]
     Active Substance: MORPHINE SULFATE
     Dosage: 21.4 MG, DAILY (LUMBAR SUBARACHNOID MORPHINE)
     Route: 037
  6. MORPHINE SULFATE. [Suspect]
     Active Substance: MORPHINE SULFATE
     Dosage: 36 MG, DAILY
     Route: 030
  7. MORPHINE SULFATE. [Suspect]
     Active Substance: MORPHINE SULFATE
     Dosage: 3.2 MG, DAILY
     Route: 037

REACTIONS (2)
  - Toxicity to various agents [Unknown]
  - Myoclonus [Unknown]
